FAERS Safety Report 14303276 (Version 1)
Quarter: 2017Q4

REPORT INFORMATION
  Report Type: Spontaneous
  Country: US (occurrence: US)
  Receive Date: 20171219
  Receipt Date: 20171219
  Transmission Date: 20180321
  Serious: Yes (Other)
  Sender: FDA-Public Use
  Company Number: US-OTSUKA-2015_000720

PATIENT

DRUGS (16)
  1. SPIRONOLACTONE. [Concomitant]
     Active Substance: SPIRONOLACTONE
     Indication: BLOOD PRESSURE MEASUREMENT
  2. DILTIAZEM. [Concomitant]
     Active Substance: DILTIAZEM
     Indication: PRODUCT USED FOR UNKNOWN INDICATION
     Dosage: UNK
     Route: 065
  3. ARIPIPRAZOLE. [Suspect]
     Active Substance: ARIPIPRAZOLE
     Dosage: 5 MG, UNK
     Route: 048
  4. XANAX [Concomitant]
     Active Substance: ALPRAZOLAM
     Indication: PRODUCT USED FOR UNKNOWN INDICATION
     Dosage: UNK
     Route: 065
  5. TRILEPTAL [Concomitant]
     Active Substance: OXCARBAZEPINE
     Indication: PRODUCT USED FOR UNKNOWN INDICATION
     Dosage: UNK
     Route: 065
  6. FLUVOXAMINE [Concomitant]
     Active Substance: FLUVOXAMINE
     Indication: IMPULSIVE BEHAVIOUR
     Route: 065
  7. CELEXA [Concomitant]
     Active Substance: CITALOPRAM HYDROBROMIDE
     Indication: PRODUCT USED FOR UNKNOWN INDICATION
     Dosage: UNK
     Route: 065
  8. LUVOX [Concomitant]
     Active Substance: FLUVOXAMINE MALEATE
     Indication: PRODUCT USED FOR UNKNOWN INDICATION
     Dosage: UNK
     Route: 065
  9. ALPRAZOLAM. [Concomitant]
     Active Substance: ALPRAZOLAM
     Indication: ANXIETY
     Route: 065
  10. FLUVOXAMINE [Concomitant]
     Active Substance: FLUVOXAMINE
     Indication: OBSESSIVE-COMPULSIVE PERSONALITY DISORDER
  11. ARIPIPRAZOLE. [Suspect]
     Active Substance: ARIPIPRAZOLE
     Indication: BIPOLAR DISORDER
     Dosage: 2 MG, UNK
     Route: 048
  12. SPIRONOLACTONE. [Concomitant]
     Active Substance: SPIRONOLACTONE
     Indication: PRODUCT USED FOR UNKNOWN INDICATION
     Dosage: UNK
     Route: 065
  13. DILTIAZEM. [Concomitant]
     Active Substance: DILTIAZEM
     Indication: BLOOD PRESSURE MEASUREMENT
  14. ARIPIPRAZOLE. [Suspect]
     Active Substance: ARIPIPRAZOLE
     Dosage: 10 UNK, UNK
     Route: 048
  15. VISTARIL [Concomitant]
     Active Substance: HYDROXYZINE PAMOATE
     Indication: PRODUCT USED FOR UNKNOWN INDICATION
     Dosage: UNK
     Route: 065
  16. VISTARIL [Concomitant]
     Active Substance: HYDROXYZINE PAMOATE
     Indication: ANXIETY

REACTIONS (7)
  - Anxiety [Unknown]
  - Mania [Not Recovered/Not Resolved]
  - Insomnia [Unknown]
  - Anxiety disorder [Unknown]
  - Drug ineffective [Unknown]
  - Tachycardia [Unknown]
  - Sleep disorder [Unknown]

NARRATIVE: CASE EVENT DATE: 2014
